FAERS Safety Report 21811754 (Version 4)
Quarter: 2023Q2

REPORT INFORMATION
  Report Type: Spontaneous
  Country: US (occurrence: US)
  Receive Date: 20230103
  Receipt Date: 20230524
  Transmission Date: 20230721
  Serious: No
  Sender: FDA-Public Use
  Company Number: US-PFIZER INC-PV202200133767

PATIENT
  Age: 71 Year
  Sex: Male

DRUGS (2)
  1. INLYTA [Suspect]
     Active Substance: AXITINIB
     Dosage: 5 MG
     Dates: end: 20230202
  2. INLYTA [Suspect]
     Active Substance: AXITINIB
     Dosage: 1 MG TABLETS TAKING 3 A DAY

REACTIONS (3)
  - Diarrhoea [Unknown]
  - Hepatic enzyme increased [Unknown]
  - Off label use [Unknown]
